FAERS Safety Report 18942262 (Version 13)
Quarter: 2024Q3

REPORT INFORMATION
  Report Type: Report from Study
  Country: US (occurrence: US)
  Receive Date: 20210225
  Receipt Date: 20240913
  Transmission Date: 20241017
  Serious: Yes (Other)
  Sender: TAKEDA
  Company Number: US-SHIRE-US201942005

PATIENT
  Age: 59 Year
  Sex: Female

DRUGS (2)
  1. HUMAN IMMUNOGLOBULIN G\HYALURONIDASE RECOMBINANT HUMAN [Suspect]
     Active Substance: HUMAN IMMUNOGLOBULIN G\HYALURONIDASE (HUMAN RECOMBINANT)
     Indication: Immunodeficiency common variable
     Dosage: 40 GRAM, Q4WEEKS
     Route: 058
  2. HUMAN IMMUNOGLOBULIN G\HYALURONIDASE RECOMBINANT HUMAN [Suspect]
     Active Substance: HUMAN IMMUNOGLOBULIN G\HYALURONIDASE (HUMAN RECOMBINANT)
     Indication: Primary immunodeficiency syndrome

REACTIONS (27)
  - Benign neoplasm [Unknown]
  - Colon cancer [Unknown]
  - Hand fracture [Unknown]
  - Neuropathy peripheral [Unknown]
  - Thrombosis [Unknown]
  - Fall [Unknown]
  - Brain fog [Unknown]
  - Product dose omission issue [Unknown]
  - Vertigo [Unknown]
  - Joint dislocation [Unknown]
  - Dysphonia [Unknown]
  - Bronchitis [Unknown]
  - Poor venous access [Unknown]
  - Oral candidiasis [Unknown]
  - Gastrointestinal viral infection [Unknown]
  - Nasopharyngitis [Unknown]
  - Infusion site reaction [Unknown]
  - Computerised tomogram abdomen abnormal [Unknown]
  - Insurance issue [Recovering/Resolving]
  - Oropharyngeal pain [Unknown]
  - Swelling [Unknown]
  - Pain in extremity [Unknown]
  - Fatigue [Unknown]
  - Malaise [Unknown]
  - Pyrexia [Unknown]
  - Sinusitis [Unknown]
  - Cancer in remission [Unknown]

NARRATIVE: CASE EVENT DATE: 20201001
